FAERS Safety Report 18922661 (Version 2)
Quarter: 2021Q1

REPORT INFORMATION
  Report Type: Spontaneous
  Country: US (occurrence: US)
  Receive Date: 20210222
  Receipt Date: 20210302
  Transmission Date: 20210420
  Serious: Yes (Other)
  Sender: FDA-Public Use
  Company Number: US-MYLANLABS-2021M1010476

PATIENT
  Sex: Female

DRUGS (4)
  1. ATENOLOL ZYDUS [Concomitant]
     Active Substance: ATENOLOL
     Indication: PALPITATIONS
  2. ATENOLOL ZYDUS [Concomitant]
     Active Substance: ATENOLOL
     Indication: CARDIAC DISORDER
  3. METHOTREXATE. [Suspect]
     Active Substance: METHOTREXATE
     Indication: PRODUCT USED FOR UNKNOWN INDICATION
     Dosage: UNK
  4. ATENOLOL ZYDUS [Concomitant]
     Active Substance: ATENOLOL
     Indication: HYPERTENSION
     Dosage: 25 MILLIGRAM, QD (ONE TABLET BY MOUTH ONCE DAILY)
     Route: 048
     Dates: start: 202008

REACTIONS (1)
  - Atrial fibrillation [Unknown]
